FAERS Safety Report 15387343 (Version 2)
Quarter: 2018Q4

REPORT INFORMATION
  Report Type: Spontaneous
  Country: CA (occurrence: CA)
  Receive Date: 20180914
  Receipt Date: 20180920
  Transmission Date: 20190204
  Serious: Yes (Death, Other)
  Sender: FDA-Public Use
  Company Number: CA-TEVA-2018-CA-953162

PATIENT
  Age: 67 Year
  Sex: Male

DRUGS (1)
  1. ACT PROPOFOL [Suspect]
     Active Substance: PROPOFOL
     Indication: EUTHANASIA
     Route: 042
     Dates: start: 20180905

REACTIONS (3)
  - Drug ineffective [Unknown]
  - Extra dose administered [Fatal]
  - Off label use [Fatal]
